FAERS Safety Report 18031662 (Version 1)
Quarter: 2020Q3

REPORT INFORMATION
  Report Type: Spontaneous
  Country: US (occurrence: US)
  Receive Date: 20200716
  Receipt Date: 20200716
  Transmission Date: 20201103
  Serious: Yes (Other)
  Sender: FDA-Public Use
  Company Number: US-CELGENEUS-USA-20200703790

PATIENT
  Age: 45 Year
  Sex: Male

DRUGS (4)
  1. THALOMID [Suspect]
     Active Substance: THALIDOMIDE
     Indication: ERYTHEMA MULTIFORME
     Dosage: 100 MILLIGRAM
     Route: 048
     Dates: start: 201805
  2. THALOMID [Suspect]
     Active Substance: THALIDOMIDE
     Indication: OFF LABEL USE
     Dosage: 50 MILLIGRAM
     Route: 048
     Dates: start: 202006
  3. PREDNISONE. [Concomitant]
     Active Substance: PREDNISONE
     Indication: PRODUCT USED FOR UNKNOWN INDICATION
     Route: 065
  4. THALOMID [Suspect]
     Active Substance: THALIDOMIDE
     Indication: LEPROMATOUS LEPROSY
     Dosage: 200?100 MILLIGRAMS
     Route: 048
     Dates: start: 201811

REACTIONS (1)
  - Neuropathy peripheral [Not Recovered/Not Resolved]

NARRATIVE: CASE EVENT DATE: 20200713
